FAERS Safety Report 24270663 (Version 2)
Quarter: 2024Q3

REPORT INFORMATION
  Report Type: Spontaneous
  Country: US (occurrence: US)
  Receive Date: 20240831
  Receipt Date: 20240917
  Transmission Date: 20241016
  Serious: Yes (Hospitalization, Other)
  Sender: AUROBINDO
  Company Number: US-MLMSERVICE-20240813-PI156517-00306-1

PATIENT
  Age: 68 Year
  Sex: Male

DRUGS (2)
  1. METHOTREXATE [Suspect]
     Active Substance: METHOTREXATE
     Indication: Prophylaxis against graft versus host disease
     Dosage: UNK
     Route: 065
  2. TACROLIMUS [Suspect]
     Active Substance: TACROLIMUS
     Indication: Prophylaxis against graft versus host disease
     Dosage: UNK
     Route: 065

REACTIONS (7)
  - Mucormycosis [Recovered/Resolved]
  - Periorbital cellulitis [Recovered/Resolved]
  - Orbital infection [Recovered/Resolved]
  - Klebsiella infection [Recovered/Resolved]
  - Cellulitis orbital [Recovered/Resolved]
  - Sinusitis bacterial [Recovered/Resolved]
  - Staphylococcal infection [Recovered/Resolved]
